FAERS Safety Report 10522183 (Version 2)
Quarter: 2015Q1

REPORT INFORMATION
  Report Type: Spontaneous
  Country: US (occurrence: US)
  Receive Date: 20141016
  Receipt Date: 20150306
  Transmission Date: 20150720
  Serious: Yes (Other)
  Sender: FDA-Public Use
  Company Number: US-PFIZER INC-2014283606

PATIENT
  Sex: Female

DRUGS (1)
  1. LYRICA [Suspect]
     Active Substance: PREGABALIN
     Dosage: UNK

REACTIONS (7)
  - Pain in extremity [Unknown]
  - Influenza like illness [Unknown]
  - Malaise [Unknown]
  - Bronchitis [Unknown]
  - Pain [Unknown]
  - Fall [Unknown]
  - Upper limb fracture [Unknown]
